FAERS Safety Report 5551645-7 (Version None)
Quarter: 2007Q4

REPORT INFORMATION
  Report Type: 
  Country: None (occurrence: None)
  Receive Date: 20071212
  Receipt Date: 20071129
  Transmission Date: 20080405
  Serious: Yes (Other)
  Sender: FDA-Public Use
  Company Number: US-ELI_LILLY_AND_COMPANY-US200711006710

PATIENT
  Sex: Male

DRUGS (5)
  1. FORTEO [Suspect]
     Dosage: UNK, UNK
     Dates: start: 20030701, end: 20050701
  2. FORTEO [Suspect]
     Dates: start: 20061001
  3. RITUXAN [Concomitant]
     Dates: start: 20030701, end: 20040201
  4. PREDNISONE [Concomitant]
     Indication: LYMPHOMA
     Dates: end: 20071102
  5. ACTONEL [Concomitant]

REACTIONS (8)
  - BONE DENSITY DECREASED [None]
  - DYSPNOEA [None]
  - LYMPHOCYTIC LEUKAEMIA [None]
  - LYMPHOMA [None]
  - MALAISE [None]
  - PLEURAL EFFUSION [None]
  - SPINAL FRACTURE [None]
  - WOUND [None]
